FAERS Safety Report 9868496 (Version 2)
Quarter: 2014Q1

REPORT INFORMATION
  Report Type: Spontaneous
  Country: IT (occurrence: IT)
  Receive Date: 20140204
  Receipt Date: 20140204
  Transmission Date: 20141002
  Serious: Yes (Other)
  Sender: FDA-Public Use
  Company Number: IT-PFIZER INC-2014023880

PATIENT
  Age: 82 Year
  Sex: Female

DRUGS (10)
  1. METHYLPREDNISOLONE SODIUM SUCCINATE [Suspect]
     Indication: BRONCHOSPASM
     Dosage: 40 MG, DAILY
     Route: 042
     Dates: start: 20131215, end: 20131217
  2. DELTACORTENE [Suspect]
     Indication: BRONCHOSPASM
     Dosage: 25 MG, DAILY
     Route: 048
     Dates: start: 20131219, end: 20131220
  3. DUOVENT [Concomitant]
     Indication: BRONCHOPNEUMONIA
     Dosage: UNK
     Route: 055
     Dates: start: 20131215, end: 20131221
  4. PARACODINA [Concomitant]
     Indication: BRONCHOPNEUMONIA
     Dosage: 10 GTT
     Dates: start: 20131220, end: 20131221
  5. NITROGLYCERIN [Concomitant]
     Indication: BRONCHOPNEUMONIA
     Dosage: 10 MG
     Route: 062
     Dates: start: 20131215, end: 20131223
  6. RAMIPRIL [Concomitant]
     Indication: BRONCHOPNEUMONIA
     Dosage: 5 MG
     Route: 048
     Dates: start: 20131215, end: 20131223
  7. AMLODIPINE [Concomitant]
     Indication: BRONCHOPNEUMONIA
     Dosage: 5 MG
     Route: 048
     Dates: start: 20131215, end: 20131222
  8. CALCITRIOL [Concomitant]
     Indication: BRONCHOPNEUMONIA
     Dosage: 0.25 MG
     Route: 048
     Dates: start: 20131216, end: 20131223
  9. OMEPRAZOLE [Concomitant]
     Indication: BRONCHOPNEUMONIA
     Dosage: 20 MG
     Route: 048
     Dates: start: 20131216, end: 20131223
  10. ACETYLSALICYLIC ACID [Concomitant]
     Indication: BRONCHOPNEUMONIA
     Dosage: 100 MG
     Route: 048
     Dates: start: 20131215, end: 20131222

REACTIONS (2)
  - Hallucination, visual [Recovered/Resolved]
  - Dry mouth [Recovered/Resolved]
